FAERS Safety Report 9173996 (Version 1)
Quarter: 2013Q1

REPORT INFORMATION
  Report Type: Spontaneous
  Country: GB (occurrence: None)
  Receive Date: 20130315
  Receipt Date: 20130315
  Transmission Date: 20140127
  Serious: Yes (Hospitalization, Other)
  Sender: FDA-Public Use
  Company Number: GER/UKI/13/0028543

PATIENT
  Age: 69 Year
  Sex: Male

DRUGS (9)
  1. SERTRALINE (SERTRALINE) (SERTRALINE) [Suspect]
     Indication: PRODUCT USED FOR UNKNOWN INDICATION
     Route: 048
     Dates: start: 20130214, end: 20130227
  2. DALTEPARIN SODIUM (DALTEPARIN SODIUM) UNKNOWN [Suspect]
     Indication: PRODUCT USED FOR UNKNOWN INDICATION
     Route: 058
     Dates: end: 20130227
  3. ASPIRIN (ACETYLSALICYLIC ACID) [Suspect]
     Indication: PRODUCT USED FOR UNKNOWN INDICATION
     Route: 048
     Dates: end: 20130227
  4. ATORVASTATIN (ATORVASTATIN) [Concomitant]
  5. DIGOXIN (DIGOXIN) [Concomitant]
  6. FLUCONAZOLE (FLUCONAZOLE) [Concomitant]
  7. PARACETAMOL (PARACETAMOL) [Concomitant]
  8. PERINDOPROL ERBUMINE (PERINDOPRIL ERBUMINE) [Concomitant]
  9. VITAMIN B COMPOUND STRONG (COMPOUND ANEURINE) [Concomitant]

REACTIONS (3)
  - Upper gastrointestinal haemorrhage [None]
  - Melaena [None]
  - Haemoglobin decreased [None]
